FAERS Safety Report 6132294-9 (Version None)
Quarter: 2009Q1

REPORT INFORMATION
  Report Type: 
  Country: None (occurrence: None)
  Receive Date: 20090320
  Receipt Date: 20090108
  Transmission Date: 20090719
  Serious: No
  Sender: FDA-Public Use
  Company Number: US-CVT-090002

PATIENT
  Age: 45 Year
  Sex: Female

DRUGS (2)
  1. RANEXA [Suspect]
     Indication: DRUG USE FOR UNKNOWN INDICATION
     Dosage: 1000 MG, BID, ORAL : 500 MG, BID, ORAL
     Route: 048
     Dates: start: 20060726, end: 20080701
  2. RANEXA [Suspect]
     Indication: DRUG USE FOR UNKNOWN INDICATION
     Dosage: 1000 MG, BID, ORAL : 500 MG, BID, ORAL
     Route: 048
     Dates: start: 20090108

REACTIONS (2)
  - CYST [None]
  - HEPATIC CYST [None]
